FAERS Safety Report 22129765 (Version 1)
Quarter: 2023Q1

REPORT INFORMATION
  Report Type: Spontaneous
  Country: IN (occurrence: IN)
  Receive Date: 20230323
  Receipt Date: 20230323
  Transmission Date: 20230417
  Serious: Yes (Other)
  Sender: FDA-Public Use
  Company Number: IN-002147023-NVSC2023IN061693

PATIENT
  Age: 66 Year
  Sex: Female
  Weight: 64.9 kg

DRUGS (8)
  1. FEMARA [Suspect]
     Active Substance: LETROZOLE
     Indication: Breast cancer
     Dosage: 100 MG, QD (DAY 1 TO DAY 21 THEN 1 WEEK OFF) MONTHLY X 4 MONTHS
     Route: 065
     Dates: start: 2012, end: 2015
  2. ROSUVASTATIN [Suspect]
     Active Substance: ROSUVASTATIN
     Indication: Product used for unknown indication
     Dosage: 5 MG, QD
     Route: 065
  3. METFORMIN HYDROCHLORIDE [Suspect]
     Active Substance: METFORMIN HYDROCHLORIDE
     Indication: Product used for unknown indication
     Dosage: 500 MG, QD
     Route: 065
  4. CALCIUM [Suspect]
     Active Substance: CALCIUM
     Indication: Product used for unknown indication
     Dosage: 600 MG, QD
     Route: 065
  5. DENOSUMAB [Suspect]
     Active Substance: DENOSUMAB
     Indication: Product used for unknown indication
     Dosage: 120 MG, QD (MONTHLY X 4 MONTHS)
     Route: 058
  6. FULVESTRANT [Suspect]
     Active Substance: FULVESTRANT
     Indication: Product used for unknown indication
     Dosage: 250 MG (1-0-1 DAY 1- DAY 15 AND THEN MONTHLY X 4 MONTHS) (IM IN BOTH BUTTOCKS)
     Route: 030
  7. PALBOCICLIB [Suspect]
     Active Substance: PALBOCICLIB
     Indication: Product used for unknown indication
     Dosage: 100 MG (DAY 1 - DAY 21, 1 WEEK OFF)
     Route: 065
  8. AROMASIN [Suspect]
     Active Substance: EXEMESTANE
     Indication: Product used for unknown indication
     Dosage: UNK
     Route: 065
     Dates: start: 201505

REACTIONS (5)
  - Breast cancer [Unknown]
  - Oestrogen receptor assay positive [Unknown]
  - Progesterone receptor assay positive [Unknown]
  - Metastases to spine [Unknown]
  - Cough [Unknown]

NARRATIVE: CASE EVENT DATE: 20220901
